FAERS Safety Report 4927394-2 (Version None)
Quarter: 2006Q1

REPORT INFORMATION
  Report Type: 
  Country: None (occurrence: None)
  Receive Date: 20060228
  Receipt Date: 20051107
  Transmission Date: 20060701
  Serious: No
  Sender: FDA-Public Use
  Company Number: US-GLAXOSMITHKLINE-A0581209A

PATIENT
  Age: 27 Year
  Sex: Female

DRUGS (2)
  1. IMITREX [Suspect]
     Indication: MIGRAINE
     Dosage: 1INJ AS REQUIRED
     Route: 058
     Dates: start: 20051026, end: 20051026
  2. IMITREX [Suspect]
     Route: 048
     Dates: start: 20051028, end: 20051028

REACTIONS (2)
  - VISION BLURRED [None]
  - VITREOUS FLOATERS [None]
